FAERS Safety Report 9112636 (Version 2)
Quarter: 2013Q1

REPORT INFORMATION
  Report Type: Spontaneous
  Country: CL (occurrence: CL)
  Receive Date: 20130211
  Receipt Date: 20130318
  Transmission Date: 20140127
  Serious: Yes (Death, Other)
  Sender: FDA-Public Use
  Company Number: PHHY2013CL003714

PATIENT
  Sex: Male

DRUGS (10)
  1. METHYLDOPA [Suspect]
     Route: 064
  2. AZATHIOPRINE [Suspect]
     Route: 064
  3. PROGESTERONE [Suspect]
     Route: 064
  4. METHYLPREDNISOLONE [Suspect]
     Route: 064
  5. PREDNISONE [Suspect]
     Route: 064
  6. CEFAZOLIN [Suspect]
     Route: 064
  7. HYDRALAZINE [Suspect]
     Route: 064
  8. FENOTEROL [Suspect]
     Route: 064
  9. BUPIVACAINE [Suspect]
     Route: 064
  10. HALOTHANE [Suspect]
     Route: 064

REACTIONS (8)
  - Respiratory failure [Fatal]
  - Premature baby [Unknown]
  - Foetal distress syndrome [Unknown]
  - Low birth weight baby [Unknown]
  - Apgar score low [Unknown]
  - Breech presentation [Unknown]
  - Breech delivery [Unknown]
  - Foetal exposure during pregnancy [Unknown]
